FAERS Safety Report 7233413-3 (Version None)
Quarter: 2011Q1

REPORT INFORMATION
  Report Type: 
  Country: None (occurrence: None)
  Receive Date: 20110119
  Receipt Date: 20101230
  Transmission Date: 20110831
  Serious: Yes (Hospitalization)
  Sender: FDA-Public Use
  Company Number: US-AMGEN-USASP2010012405

PATIENT

DRUGS (2)
  1. ENBREL [Suspect]
     Indication: RHEUMATOID ARTHRITIS
     Dates: start: 20100501
  2. METHOTREXATE [Concomitant]
     Dates: start: 20101208

REACTIONS (7)
  - LOSS OF CONSCIOUSNESS [None]
  - ANXIETY [None]
  - INJECTION SITE PRURITUS [None]
  - WEIGHT INCREASED [None]
  - INJECTION SITE SWELLING [None]
  - INJECTION SITE PAIN [None]
  - RHEUMATOID ARTHRITIS [None]
